FAERS Safety Report 5975890-1 (Version None)
Quarter: 2008Q4

REPORT INFORMATION
  Report Type: 
  Country: None (occurrence: None)
  Receive Date: 20081202
  Receipt Date: 20081124
  Transmission Date: 20090506
  Serious: Yes (Congenital Anomaly)
  Sender: FDA-Public Use
  Company Number: B0548535A

PATIENT

DRUGS (3)
  1. ZIDOVUDINE [Suspect]
     Route: 065
  2. LAMIVUDINE [Suspect]
     Route: 065
  3. NEVIRAPINE [Suspect]
     Route: 065

REACTIONS (10)
  - BONE DISORDER [None]
  - CARDIOMEGALY [None]
  - CUSHINGOID [None]
  - DRUG EXPOSURE DURING PREGNANCY [None]
  - HEPATOMEGALY [None]
  - HIGH ARCHED PALATE [None]
  - INTESTINAL ATRESIA [None]
  - RENAL APLASIA [None]
  - SKIN OEDEMA [None]
  - SPINA BIFIDA [None]
